FAERS Safety Report 6431775-8 (Version None)
Quarter: 2009Q4

REPORT INFORMATION
  Report Type: 
  Country: None (occurrence: None)
  Receive Date: 20091104
  Receipt Date: 20091023
  Transmission Date: 20100525
  Serious: Yes (Other)
  Sender: FDA-Public Use
  Company Number: 230032K09CHE

PATIENT
  Age: 56 Year
  Sex: Male

DRUGS (1)
  1. REBIF [Suspect]
     Indication: MULTIPLE SCLEROSIS
     Dosage: 44 MCG, 3 IN 1 WEEKS, SUBCUTANEOUS; 44 MCG, 1 IN 1 WEEKS, SUBCUTANEOUS
     Route: 058

REACTIONS (3)
  - LEUKOPENIA [None]
  - MYOCARDIAL INFARCTION [None]
  - OESOPHAGEAL ADENOCARCINOMA [None]
